FAERS Safety Report 9507395 (Version 1)
Quarter: 2013Q3

REPORT INFORMATION
  Report Type: Spontaneous
  Country: US (occurrence: None)
  Receive Date: 20130904
  Receipt Date: 20130904
  Transmission Date: 20140515
  Serious: Yes (Hospitalization)
  Sender: FDA-Public Use
  Company Number: UTC-037264

PATIENT
  Age: 37 Year
  Sex: Female
  Weight: 64.1 kg

DRUGS (1)
  1. REMODULIN (10 MILLIGRAM/MILLILITERS, INJECTION FOR INFUSION) (TREPROSTINIL SODIUM) [Suspect]
     Indication: PULMONARY ARTERIAL HYPERTENSION
     Dosage: 135.36 UG/KG (0.974 UG/KG, 1 IN 1 MIN)
     Route: 058
     Dates: start: 20121114

REACTIONS (2)
  - Infusion site abscess [None]
  - Infusion site infection [None]
